FAERS Safety Report 9115868 (Version 1)
Quarter: 2013Q1

REPORT INFORMATION
  Report Type: Spontaneous
  Country: US (occurrence: US)
  Receive Date: 20130225
  Receipt Date: 20130225
  Transmission Date: 20140127
  Serious: Yes (Hospitalization)
  Sender: FDA-Public Use
  Company Number: US-GLAXOSMITHKLINE-A1012499A

PATIENT
  Sex: Female

DRUGS (11)
  1. LAMOTRIGINE [Suspect]
     Indication: BIPOLAR DISORDER
     Dosage: 100MG TWICE PER DAY
     Route: 048
     Dates: start: 2008, end: 2008
  2. WELLBUTRIN SR [Concomitant]
  3. NOVOLOG [Concomitant]
  4. LANTUS [Concomitant]
  5. LIPITOR [Concomitant]
  6. LISINOPRIL [Concomitant]
  7. METFORMIN [Concomitant]
  8. FUROSEMIDE [Concomitant]
  9. IRON [Concomitant]
  10. UNSPECIFIED MEDICATION [Concomitant]
     Indication: INCONTINENCE
  11. LAMICTAL [Concomitant]

REACTIONS (4)
  - Mood swings [Recovered/Resolved]
  - Drug ineffective [Unknown]
  - Drug prescribing error [Unknown]
  - Product substitution issue [None]
